FAERS Safety Report 4783687-3 (Version None)
Quarter: 2005Q3

REPORT INFORMATION
  Report Type: 
  Country: None (occurrence: None)
  Receive Date: 20050927
  Receipt Date: 20050524
  Transmission Date: 20060218
  Serious: No
  Sender: FDA-Public Use
  Company Number: USA050598966

PATIENT
  Age: 7 Year
  Sex: Female
  Weight: 34 kg

DRUGS (2)
  1. STRATTERA [Suspect]
     Indication: ATTENTION DEFICIT/HYPERACTIVITY DISORDER
     Dosage: 120 MG DAY
     Dates: start: 20041231
  2. WELLBUTRIN SR [Concomitant]

REACTIONS (3)
  - IMPULSIVE BEHAVIOUR [None]
  - IRRITABILITY [None]
  - PRESCRIBED OVERDOSE [None]
